FAERS Safety Report 14987855 (Version 1)
Quarter: 2018Q2

REPORT INFORMATION
  Report Type: Spontaneous
  Country: US (occurrence: US)
  Receive Date: 20180608
  Receipt Date: 20180608
  Transmission Date: 20180711
  Serious: Yes (Death, Hospitalization, Other)
  Sender: FDA-Public Use
  Company Number: US-ASTELLAS-2018US025424

PATIENT
  Age: 65 Year
  Sex: Male

DRUGS (2)
  1. AMPHOTERICIN B, LIPOSOME [Suspect]
     Active Substance: AMPHOTERICIN B
     Indication: ENDOCARDITIS
     Route: 042
  2. ISAVUCONAZOLE [Suspect]
     Active Substance: ISAVUCONAZOLE
     Indication: BRONCHOPULMONARY ASPERGILLOSIS
     Dosage: UNK UNK, UNKNOWN FREQ.
     Route: 065

REACTIONS (11)
  - Drug ineffective [Unknown]
  - Death [Fatal]
  - Vasculitis cerebral [Unknown]
  - Endocarditis [Unknown]
  - Treatment failure [Unknown]
  - Cytomegalovirus infection [Unknown]
  - Intracranial aneurysm [Unknown]
  - Myocarditis mycotic [Unknown]
  - Hepatotoxicity [Unknown]
  - Fungal endocarditis [Unknown]
  - Subarachnoid haemorrhage [Unknown]
